FAERS Safety Report 7530144-7 (Version None)
Quarter: 2011Q2

REPORT INFORMATION
  Report Type: 
  Country: None (occurrence: None)
  Receive Date: 20110607
  Receipt Date: 20110531
  Transmission Date: 20111010
  Serious: Yes (Hospitalization)
  Sender: FDA-Public Use
  Company Number: US-US-EMD SERONO, INC.-7061454

PATIENT
  Sex: Female
  Weight: 67 kg

DRUGS (9)
  1. SOLU-MEDROL [Concomitant]
  2. IBUPROFEN [Concomitant]
  3. REBIF [Suspect]
     Indication: MULTIPLE SCLEROSIS
     Route: 058
     Dates: start: 20090824, end: 20110101
  4. EXCEDRIN PM [Concomitant]
  5. NUVIGIL [Concomitant]
     Dates: start: 20110523
  6. REBIF [Suspect]
     Route: 058
  7. ORTHO TRI-CYCLEN [Concomitant]
  8. MULTI-VITAMIN [Concomitant]
  9. BENADRYL [Concomitant]

REACTIONS (6)
  - DIZZINESS [None]
  - DEHYDRATION [None]
  - HAEMORRHAGE [None]
  - PLATELET COUNT DECREASED [None]
  - CONTUSION [None]
  - HEADACHE [None]
